FAERS Safety Report 10175168 (Version 1)
Quarter: 2014Q2

REPORT INFORMATION
  Report Type: Spontaneous
  Country: US (occurrence: US)
  Receive Date: 20140515
  Receipt Date: 20140515
  Transmission Date: 20141212
  Serious: No
  Sender: FDA-Public Use
  Company Number: US-VIVUS-2014V1000071

PATIENT
  Age: 59 Year
  Sex: Female
  Weight: 72.64 kg

DRUGS (2)
  1. QSYMIA 7.5MG/46MG [Suspect]
     Indication: WEIGHT DECREASED
     Route: 048
     Dates: start: 20140115, end: 201401
  2. QSYMIA 3.75MG/23MG [Suspect]
     Indication: WEIGHT DECREASED
     Route: 048
     Dates: start: 20140101, end: 20140114

REACTIONS (2)
  - Abdominal pain upper [Recovered/Resolved]
  - Constipation [Recovering/Resolving]
